FAERS Safety Report 4592406-5 (Version None)
Quarter: 2005Q1

REPORT INFORMATION
  Report Type: 
  Country: None (occurrence: None)
  Receive Date: 20050228
  Receipt Date: 20050113
  Transmission Date: 20050727
  Serious: No
  Sender: FDA-Public Use
  Company Number: US-BRISTOL-MYERS SQUIBB COMPANY-12825600

PATIENT
  Age: 43 Year
  Sex: Female
  Weight: 86 kg

DRUGS (10)
  1. ABILIFY [Suspect]
     Indication: BIPOLAR DISORDER
     Route: 048
     Dates: start: 20041201
  2. ABILIFY [Suspect]
     Indication: PSYCHOTIC DISORDER
     Route: 048
     Dates: start: 20041201
  3. RISPERDAL [Concomitant]
  4. KLONOPIN [Concomitant]
  5. TOPAMAX [Concomitant]
  6. CLARITIN-D [Concomitant]
  7. FLONASE [Concomitant]
  8. MULTI-VITAMINS [Concomitant]
  9. VITAMIN B COMPLEX CAP [Concomitant]
  10. VITAMIN E [Concomitant]

REACTIONS (1)
  - ALOPECIA [None]
